FAERS Safety Report 5341509-6 (Version None)
Quarter: 2007Q2

REPORT INFORMATION
  Report Type: 
  Country: None (occurrence: None)
  Receive Date: 20070601
  Receipt Date: 20070523
  Transmission Date: 20071010
  Serious: Yes (Hospitalization)
  Sender: FDA-Public Use
  Company Number: PHHO2007BE08721

PATIENT
  Age: 65 Year
  Sex: Female

DRUGS (1)
  1. TAMOXIFEN CITRATE [Suspect]
     Dosage: DOUBLE BLIND
     Route: 048
     Dates: start: 20020613

REACTIONS (2)
  - HYSTERECTOMY [None]
  - UTERINE POLYP [None]
